FAERS Safety Report 13427305 (Version 4)
Quarter: 2017Q2

REPORT INFORMATION
  Report Type: Spontaneous
  Country: JP (occurrence: JP)
  Receive Date: 20170411
  Receipt Date: 20170628
  Transmission Date: 20170830
  Serious: Yes (Death, Hospitalization)
  Sender: FDA-Public Use
  Company Number: JP-VIFOR (INTERNATIONAL) INC.-VIT-2017-03829

PATIENT
  Age: 57 Year
  Sex: Male
  Weight: 66 kg

DRUGS (13)
  1. VELPHORO [Suspect]
     Active Substance: FERRIC OXYHYDROXIDE
     Indication: HYPERPHOSPHATAEMIA
     Route: 048
     Dates: start: 20170308, end: 20170324
  2. AZILVA [Concomitant]
     Active Substance: AZILSARTAN KAMEDOXOMIL
     Indication: HYPERTENSION
     Dates: end: 20170330
  3. AMOBAN [Concomitant]
     Active Substance: ZOPICLONE
     Indication: INSOMNIA
     Dates: end: 20170327
  4. SHINLUCK [Concomitant]
     Active Substance: SODIUM PICOSULFATE
     Indication: CONSTIPATION
     Dates: end: 20170327
  5. FOSRENOL [Concomitant]
     Active Substance: LANTHANUM CARBONATE
     Indication: HYPERPHOSPHATAEMIA
     Dates: start: 20160907, end: 20170327
  6. ALLEGRA [Concomitant]
     Active Substance: FEXOFENADINE HYDROCHLORIDE
     Indication: PRURITUS
     Dates: end: 20170327
  7. NORVASC [Concomitant]
     Active Substance: AMLODIPINE BESYLATE
     Indication: HYPERTENSION
     Dates: end: 20170322
  8. TRAZENTA [Concomitant]
     Active Substance: LINAGLIPTIN
     Indication: DIABETES MELLITUS
  9. NESP [Concomitant]
     Active Substance: DARBEPOETIN ALFA
     Indication: NEPHROGENIC ANAEMIA
     Route: 042
  10. OXAROL [Concomitant]
     Active Substance: MAXACALCITOL
     Indication: HYPERPARATHYROIDISM SECONDARY
     Route: 042
  11. FEBURIC [Concomitant]
     Active Substance: FEBUXOSTAT
     Indication: HYPERURICAEMIA
     Dates: start: 20161228
  12. ALOSENN [Concomitant]
     Active Substance: SENNA LEAF
     Indication: CONSTIPATION
  13. TAKEPRON [Concomitant]
     Active Substance: LANSOPRAZOLE
     Indication: GASTROOESOPHAGEAL REFLUX DISEASE

REACTIONS (17)
  - Gait disturbance [Unknown]
  - Diarrhoea [Unknown]
  - Cardio-respiratory arrest [Fatal]
  - Oropharyngeal pain [Unknown]
  - Gastrointestinal haemorrhage [Fatal]
  - Haematemesis [Fatal]
  - Swelling [Unknown]
  - Sneezing [Unknown]
  - Henoch-Schonlein purpura [Fatal]
  - Haematochezia [Unknown]
  - Head discomfort [Unknown]
  - Loss of consciousness [Fatal]
  - Arthralgia [Fatal]
  - Upper respiratory tract inflammation [Recovering/Resolving]
  - Cough [Not Recovered/Not Resolved]
  - Shock haemorrhagic [Fatal]
  - Rash [Unknown]

NARRATIVE: CASE EVENT DATE: 201703
